FAERS Safety Report 6173063-3 (Version None)
Quarter: 2009Q2

REPORT INFORMATION
  Report Type: 
  Country: None (occurrence: None)
  Receive Date: 20090424
  Receipt Date: 20090126
  Transmission Date: 20091009
  Serious: No
  Sender: FDA-Public Use
  Company Number: ALL1-2009-00191

PATIENT
  Age: 13 Year
  Sex: Male
  Weight: 68 kg

DRUGS (3)
  1. VYVANSE [Suspect]
     Indication: ATTENTION DEFICIT/HYPERACTIVITY DISORDER
     Dosage: 30 MG, 1X/DAY QD, ORAL
     Route: 048
     Dates: start: 20090123
  2. UNSPECIFIED INHALER [Concomitant]
  3. ERYTHROMYCIN [Concomitant]

REACTIONS (2)
  - OFF LABEL USE [None]
  - THROAT TIGHTNESS [None]
